FAERS Safety Report 8839175 (Version 1)
Quarter: 2012Q4

REPORT INFORMATION
  Report Type: 
  Country: GB (occurrence: GB)
  Receive Date: 20121015
  Receipt Date: 20121015
  Transmission Date: 20130627
  Serious: Yes (Other)
  Sender: FDA-Public Use
  Company Number: GB-009507513-1006USA03598

PATIENT
  Age: 67 Year
  Sex: Female
  Weight: 61.3 kg

DRUGS (7)
  1. ZOCOR [Suspect]
     Indication: LIPIDS INCREASED
     Dosage: 40 mg, qd
     Route: 048
     Dates: start: 20100407, end: 20100423
  2. BLINDED THERAPY [Concomitant]
     Indication: OSTEOPOROSIS POSTMENOPAUSAL
     Dosage: 1 DF, qw
     Route: 048
     Dates: start: 20090706, end: 20100426
  3. CHOLECALCIFEROL [Concomitant]
     Indication: MEDICAL DIET
     Dosage: 5600 IU, QW
     Route: 048
     Dates: start: 20090608, end: 20100611
  4. REPLENS [Concomitant]
     Indication: VULVOVAGINAL DRYNESS
     Dosage: 1 DF, prn
     Route: 067
     Dates: start: 20090515
  5. EVENING PRIMROSE OIL [Concomitant]
     Indication: ROUTINE HEALTH MAINTENANCE
     Dosage: 1 DF, qd
     Route: 048
     Dates: start: 19990715
  6. SEVEN SEAS ONE A DAY PURE COD LIVER OIL PLUS EVENING PRIMROSE OIL [Concomitant]
     Indication: ROUTINE HEALTH MAINTENANCE
     Dosage: 1 DF, qd
     Route: 048
     Dates: start: 19890715
  7. OMEPRAZOLE [Concomitant]
     Indication: PROPHYLAXIS
     Dosage: 20 mg, qd
     Route: 048
     Dates: start: 20100308, end: 201004

REACTIONS (1)
  - Angina pectoris [Recovered/Resolved]
